FAERS Safety Report 8419792-X (Version None)
Quarter: 2012Q2

REPORT INFORMATION
  Report Type: 
  Country: None (occurrence: None)
  Receive Date: 20120607
  Receipt Date: 20120419
  Transmission Date: 20120825
  Serious: Yes (Hospitalization)
  Sender: FDA-Public Use
  Company Number: CN-BAXTER-2011BH037493

PATIENT
  Sex: Female
  Weight: 60 kg

DRUGS (4)
  1. AMLODIPINE [Concomitant]
     Indication: HYPERTENSION
     Route: 048
  2. LOSARTAN [Concomitant]
     Indication: HYPERTENSION
     Route: 048
  3. ERYTHROPOIETIN HUMAN [Concomitant]
     Route: 058
     Dates: start: 20111026
  4. PERITONEAL DIALYSIS SOLUTION (LACTATE- G 1.5%) [Suspect]
     Indication: PERITONEAL DIALYSIS
     Route: 033
     Dates: start: 20111026

REACTIONS (1)
  - PERITONEAL DIALYSIS COMPLICATION [None]
